FAERS Safety Report 7893251-5 (Version None)
Quarter: 2011Q4

REPORT INFORMATION
  Report Type: 
  Country: None (occurrence: None)
  Receive Date: 20111104
  Receipt Date: 20111101
  Transmission Date: 20120403
  Serious: Yes (Other)
  Sender: FDA-Public Use
  Company Number: PHEH2011US04256

PATIENT
  Age: 81 Year
  Sex: Male

DRUGS (6)
  1. NEXIUM [Concomitant]
     Dosage: 40 MG, (AS NEEDED)
  2. DIOVAN HCT [Suspect]
     Dosage: 1 DF (160 MG VALSARTAN AND 25 MG HYDROCHLOROTHIAZIDE)
  3. VITAMIN TAB [Concomitant]
  4. DEPAKOTE [Concomitant]
     Dosage: 500 MG, BID
  5. DIOVAN [Suspect]
  6. FERROUS SULFATE TAB [Concomitant]
     Dosage: 325 MG, QD

REACTIONS (2)
  - LARYNGITIS [None]
  - CATARACT [None]
